FAERS Safety Report 23521732 (Version 1)
Quarter: 2024Q1

REPORT INFORMATION
  Report Type: 
  Country: None (occurrence: None)
  Receive Date: 20240214
  Receipt Date: 20240214
  Transmission Date: 20240410
  Serious: No
  Sender: FDA-Public Use
  Company Number: DE-ROCHE-3194097

PATIENT
  Weight: 83 kg

DRUGS (16)
  1. OCREVUS [Suspect]
     Active Substance: OCRELIZUMAB
     Dates: start: 20220531, end: 20220614
  2. OCREVUS [Suspect]
     Active Substance: OCRELIZUMAB
     Dates: start: 20221215
  3. NATALIZUMAB [Suspect]
     Active Substance: NATALIZUMAB
     Dosage: MOST RECENT DOSE PRIOR TO AE 25/MAR/2022
     Dates: start: 20210827
  4. NOVALGIN (AUSTRIA) [Concomitant]
     Dosage: DEFINITION OF THE INTERVAL: AS REQUIRED
  5. PFIZER-BIONTECH COVID-19 VACCINE [Concomitant]
     Active Substance: TOZINAMERAN
     Dates: start: 20221105, end: 20221105
  6. PFIZER-BIONTECH COVID-19 VACCINE [Concomitant]
     Active Substance: TOZINAMERAN
     Dates: start: 20220305, end: 20220305
  7. PFIZER-BIONTECH COVID-19 VACCINE [Concomitant]
     Active Substance: TOZINAMERAN
     Dates: start: 20211006, end: 20211006
  8. PFIZER-BIONTECH COVID-19 VACCINE [Concomitant]
     Active Substance: TOZINAMERAN
     Dates: start: 20211130, end: 20211130
  9. SHINGRIX [Concomitant]
     Active Substance: RECOMBINANT VARICELLA ZOSTER VIRUS (VZV) GLYCOPROTEIN E
     Dates: start: 20220509, end: 20220509
  10. NATALIZUMAB [Concomitant]
     Active Substance: NATALIZUMAB
     Dates: start: 20210827, end: 20220325
  11. CHOLESTYRAMINE [Concomitant]
     Active Substance: CHOLESTYRAMINE
     Dates: start: 20210508, end: 202105
  12. CIMETIDIN [Concomitant]
     Dates: start: 20221215
  13. CIMETIDIN [Concomitant]
     Dates: start: 20220531, end: 20220614
  14. DESOGESTREL [Concomitant]
     Active Substance: DESOGESTREL
  15. IBUPROFEN [Concomitant]
     Active Substance: IBUPROFEN
  16. TERIFLUNOMIDE [Concomitant]
     Active Substance: TERIFLUNOMIDE
     Dates: start: 20190921, end: 20210507

REACTIONS (2)
  - Endometriosis [None]
  - Tubo-ovarian abscess [None]

NARRATIVE: CASE EVENT DATE: 20220924
